FAERS Safety Report 10758087 (Version 1)
Quarter: 2015Q1

REPORT INFORMATION
  Report Type: Report from Study
  Country: US (occurrence: US)
  Receive Date: 20150203
  Receipt Date: 20150203
  Transmission Date: 20150721
  Serious: Yes (Other)
  Sender: FDA-Public Use
  Company Number: US-BAYER-2014-167174

PATIENT
  Age: 65 Year
  Sex: Male

DRUGS (2)
  1. STIVARGA [Suspect]
     Active Substance: REGORAFENIB
     Indication: COLON CANCER
     Dosage: 160 MG, DAILY
     Route: 048
     Dates: start: 20140710
  2. STIVARGA [Suspect]
     Active Substance: REGORAFENIB
     Indication: COLON CANCER
     Dosage: 80- 120MG DAILY
     Route: 048
     Dates: start: 20141101, end: 20141124

REACTIONS (10)
  - Pruritus [None]
  - Decreased appetite [None]
  - Diarrhoea [None]
  - Diarrhoea [None]
  - Enterocolitis fungal [Not Recovered/Not Resolved]
  - Dysphonia [None]
  - Proctalgia [None]
  - Drug ineffective [None]
  - Gastroenteritis bacterial [Recovered/Resolved]
  - Fatigue [None]

NARRATIVE: CASE EVENT DATE: 2014
